FAERS Safety Report 5612159-9 (Version None)
Quarter: 2008Q1

REPORT INFORMATION
  Report Type: 
  Country: None (occurrence: None)
  Receive Date: 20080204
  Receipt Date: 20080121
  Transmission Date: 20080703
  Serious: Yes (Hospitalization)
  Sender: FDA-Public Use
  Company Number: GB-AMGEN-US262321

PATIENT
  Sex: Female
  Weight: 93 kg

DRUGS (9)
  1. ENBREL [Suspect]
     Indication: RHEUMATOID ARTHRITIS
     Route: 058
     Dates: start: 20040115
  2. PREDNISOLONE [Concomitant]
     Dosage: UNKNOWN
  3. LEVOTHYROXINE SODIUM [Concomitant]
     Dosage: UNKNOWN
  4. DICLOFENAC [Concomitant]
     Dosage: UNKNOWN
  5. FOLIC ACID [Concomitant]
     Dosage: UNKNOWN
  6. SOLPADOL [Concomitant]
     Dosage: UNKNOWN
  7. METHOTREXATE [Concomitant]
     Dosage: UNKNOWN
  8. AMITRIPTYLINE HCL [Concomitant]
     Dosage: UNKNOWN
  9. HORMONE NOS [Concomitant]

REACTIONS (3)
  - CHILLS [None]
  - ESCHERICHIA INFECTION [None]
  - HYPERHIDROSIS [None]
